FAERS Safety Report 7940646-7 (Version None)
Quarter: 2011Q4

REPORT INFORMATION
  Report Type: 
  Country: None (occurrence: None)
  Receive Date: 20111128
  Receipt Date: 20111114
  Transmission Date: 20120403
  Serious: Yes (Hospitalization)
  Sender: FDA-Public Use
  Company Number: CA-ELI_LILLY_AND_COMPANY-CA201111004899

PATIENT
  Age: 73 Year
  Sex: Female

DRUGS (4)
  1. VITAMIN D [Concomitant]
  2. METHOTREXATE [Concomitant]
  3. CALCIUM [Concomitant]
  4. FORTEO [Suspect]
     Indication: OSTEOPOROSIS
     Dosage: 20 UG, QD
     Route: 058
     Dates: start: 20101209

REACTIONS (2)
  - GAIT DISTURBANCE [None]
  - ARTHRITIS [None]
